FAERS Safety Report 10202336 (Version 1)
Quarter: 2014Q2

REPORT INFORMATION
  Report Type: Spontaneous
  Country: US (occurrence: US)
  Receive Date: 20140528
  Receipt Date: 20140528
  Transmission Date: 20141212
  Serious: No
  Sender: FDA-Public Use
  Company Number: US-BRISTOL-MYERS SQUIBB COMPANY-20430989

PATIENT
  Sex: 0

DRUGS (1)
  1. METFORMIN HCL [Suspect]

REACTIONS (1)
  - Blood glucose increased [Unknown]
